FAERS Safety Report 22608820 (Version 2)
Quarter: 2023Q2

REPORT INFORMATION
  Report Type: Spontaneous
  Country: US (occurrence: US)
  Receive Date: 20230616
  Receipt Date: 20230622
  Transmission Date: 20230722
  Serious: No
  Sender: FDA-Public Use
  Company Number: US-BRISTOL-MYERS SQUIBB COMPANY-2023-085311

PATIENT
  Age: 78 Year
  Sex: Male

DRUGS (2)
  1. IDHIFA [Suspect]
     Active Substance: ENASIDENIB MESYLATE
     Indication: Product used for unknown indication
     Route: 048
  2. IDHIFA [Suspect]
     Active Substance: ENASIDENIB MESYLATE
     Route: 048

REACTIONS (1)
  - Haemoglobin abnormal [Unknown]
